FAERS Safety Report 20577914 (Version 1)
Quarter: 2022Q1

REPORT INFORMATION
  Report Type: Spontaneous
  Country: US (occurrence: None)
  Receive Date: 20220310
  Receipt Date: 20220310
  Transmission Date: 20220423
  Serious: No
  Sender: FDA-Public Use
  Company Number: 2022A069474

PATIENT
  Sex: Female

DRUGS (5)
  1. COMIRNATY [Suspect]
     Active Substance: TOZINAMERAN
     Dosage: ONCE/SINGLE ADMINISTRATION
     Route: 065
  2. SYMBICORT [Suspect]
     Active Substance: BUDESONIDE\FORMOTEROL FUMARATE DIHYDRATE
     Indication: COVID-19
     Dosage: UNKNOWN
     Route: 055
  3. COMIRNATY [Suspect]
     Active Substance: TOZINAMERAN
     Dosage: ONCE/SINGLE ADMINISTRATION
     Route: 065
     Dates: start: 20210419
  4. COMIRNATY [Suspect]
     Active Substance: TOZINAMERAN
     Dosage: ONCE/SINGLE ADMINISTRATION
     Route: 065
     Dates: start: 20210721
  5. KLONOPIN [Concomitant]
     Active Substance: CLONAZEPAM
     Indication: Anxiety
     Route: 065

REACTIONS (15)
  - COVID-19 [Unknown]
  - Tinnitus [Recovered/Resolved]
  - Photosensitivity reaction [Unknown]
  - Heart rate increased [Unknown]
  - Hot flush [Unknown]
  - Thinking abnormal [Recovered/Resolved]
  - Eye pain [Unknown]
  - Drug use disorder [Unknown]
  - Body temperature decreased [Unknown]
  - Anxiety [Unknown]
  - Pyrexia [Unknown]
  - Chills [Recovered/Resolved]
  - Rash [Unknown]
  - Erythema [Unknown]
  - Device dispensing error [Unknown]
